FAERS Safety Report 6532407-0 (Version None)
Quarter: 2010Q1

REPORT INFORMATION
  Report Type: 
  Country: None (occurrence: None)
  Receive Date: 20100108
  Receipt Date: 20100104
  Transmission Date: 20100710
  Serious: Yes (Other)
  Sender: FDA-Public Use
  Company Number: US-ELI_LILLY_AND_COMPANY-US201001000184

PATIENT
  Sex: Female

DRUGS (2)
  1. HUMALOG [Suspect]
     Indication: DIABETES MELLITUS
     Dosage: UNK, AS NEEDED
  2. LANTUS [Concomitant]
     Dosage: UNK, EACH EVENING

REACTIONS (4)
  - BLINDNESS [None]
  - DIABETIC RETINOPATHY [None]
  - MACULAR DEGENERATION [None]
  - WRONG TECHNIQUE IN DRUG USAGE PROCESS [None]
